FAERS Safety Report 7070562-7 (Version None)
Quarter: 2010Q4

REPORT INFORMATION
  Report Type: 
  Country: None (occurrence: None)
  Receive Date: 20101029
  Receipt Date: 20101019
  Transmission Date: 20110411
  Serious: Yes (Death, Other)
  Sender: FDA-Public Use
  Company Number: US-PFIZER INC-2010039822

PATIENT
  Sex: Female
  Weight: 53.515 kg

DRUGS (1)
  1. SUTENT [Suspect]
     Indication: METASTATIC RENAL CELL CARCINOMA
     Dosage: 50 MG, 1X/DAY
     Route: 048
     Dates: start: 20100218, end: 20100511

REACTIONS (15)
  - ABDOMINAL PAIN UPPER [None]
  - ASTHENIA [None]
  - CARDIAC FAILURE CONGESTIVE [None]
  - CARDIOMYOPATHY [None]
  - CONSTIPATION [None]
  - DECREASED APPETITE [None]
  - DEHYDRATION [None]
  - FAECAL INCONTINENCE [None]
  - NAUSEA [None]
  - OEDEMA [None]
  - RENAL FAILURE [None]
  - SKIN DISCOLOURATION [None]
  - SYNCOPE [None]
  - THROMBOCYTOPENIA [None]
  - VOMITING [None]
